FAERS Safety Report 20506236 (Version 1)
Quarter: 2022Q1

REPORT INFORMATION
  Report Type: Spontaneous
  Country: RU (occurrence: RU)
  Receive Date: 20220223
  Receipt Date: 20220223
  Transmission Date: 20220424
  Serious: Yes (Hospitalization, Other)
  Sender: FDA-Public Use
  Company Number: RU-VALIDUS PHARMACEUTICALS LLC-RU-VDP-2022-015096

PATIENT

DRUGS (7)
  1. TRENTAL [Suspect]
     Active Substance: PENTOXIFYLLINE
     Indication: Guillain-Barre syndrome
     Dosage: 5 ML
     Route: 041
     Dates: start: 20210707
  2. .ALPHA.-LIPOIC ACID [Concomitant]
     Active Substance: .ALPHA.-LIPOIC ACID
     Indication: Guillain-Barre syndrome
     Dosage: UNK
     Route: 065
     Dates: start: 20210707
  3. PREDNISOLONE [Concomitant]
     Active Substance: PREDNISOLONE
     Indication: Guillain-Barre syndrome
     Dosage: UNK
     Route: 065
     Dates: start: 20210707
  4. OMEPRAZOLE [Concomitant]
     Active Substance: OMEPRAZOLE
     Indication: Product used for unknown indication
     Dosage: UNK
     Route: 065
     Dates: start: 20210707
  5. EUTHYROX [Concomitant]
     Active Substance: LEVOTHYROXINE SODIUM
     Indication: Product used for unknown indication
     Dosage: UNK
     Route: 065
     Dates: start: 20210707
  6. ENALAPRIL [Concomitant]
     Active Substance: ENALAPRIL
     Indication: Product used for unknown indication
     Dosage: UNKNOWN
     Route: 065
  7. MAGNESIUM SULFATE [Concomitant]
     Active Substance: MAGNESIUM SULFATE
     Indication: Product used for unknown indication
     Dosage: UNK
     Route: 065
     Dates: start: 20210707

REACTIONS (1)
  - Hepatitis [Recovering/Resolving]

NARRATIVE: CASE EVENT DATE: 20210716
